FAERS Safety Report 5935652-8 (Version None)
Quarter: 2008Q4

REPORT INFORMATION
  Report Type: 
  Country: None (occurrence: None)
  Receive Date: 20081030
  Receipt Date: 20081021
  Transmission Date: 20090506
  Serious: Yes (Other)
  Sender: FDA-Public Use
  Company Number: DE-NOVOPROD-280256

PATIENT
  Sex: Male
  Weight: 57 kg

DRUGS (2)
  1. LEVEMIR [Suspect]
     Indication: TYPE 1 DIABETES MELLITUS
     Dosage: 18 U, QD
     Route: 058
     Dates: start: 20080201, end: 20080409
  2. INSULIN [Concomitant]
     Indication: TYPE 1 DIABETES MELLITUS
     Dosage: UNK, PRN
     Route: 058
     Dates: start: 20080101

REACTIONS (4)
  - ARTHRALGIA [None]
  - BLOOD GLUCOSE ABNORMAL [None]
  - MALAISE [None]
  - OEDEMA PERIPHERAL [None]
